FAERS Safety Report 14248358 (Version 12)
Quarter: 2024Q1

REPORT INFORMATION
  Report Type: Spontaneous
  Country: FR (occurrence: FR)
  Receive Date: 20171204
  Receipt Date: 20240325
  Transmission Date: 20240410
  Serious: Yes (Hospitalization)
  Sender: FDA-Public Use
  Company Number: FR-TEVA-2017-FR-827994

PATIENT
  Age: 27 Year
  Sex: Male
  Weight: 72 kg

DRUGS (8)
  1. VINCRISTINE [Suspect]
     Active Substance: VINCRISTINE
     Indication: Glioneuronal tumour
     Dosage: 2 MG DAILY, VINCRISTINE TEVA
     Route: 042
     Dates: start: 20170308, end: 20170719
  2. PROCARBAZINE HYDROCHLORIDE [Suspect]
     Active Substance: PROCARBAZINE HYDROCHLORIDE
     Indication: Glioneuronal tumour
     Dosage: DOSAGE TEXT: 100 MG DAILY
     Route: 048
     Dates: start: 20170308, end: 20170801
  3. LOMUSTINE [Suspect]
     Active Substance: LOMUSTINE
     Indication: Glioneuronal tumour
     Dosage: 160 MG DAILY
     Route: 048
     Dates: start: 20170301, end: 20170712
  4. KEPPRA [Suspect]
     Active Substance: LEVETIRACETAM
     Indication: Epilepsy
     Dosage: 750 MG, 2X/DAY (BID)
     Route: 048
  5. AUGMENTIN [Suspect]
     Active Substance: AMOXICILLIN\CLAVULANATE POTASSIUM
     Indication: Pyrexia
     Dosage: 3 G DAILY
     Route: 042
     Dates: start: 20170731, end: 20170810
  6. LEVOFLOXACIN [Suspect]
     Active Substance: LEVOFLOXACIN
     Indication: Pyrexia
     Dosage: UNK
     Route: 048
     Dates: start: 20170804, end: 20170810
  7. TEMODAL [Concomitant]
     Active Substance: TEMOZOLOMIDE
     Indication: Glioneuronal tumour
     Dosage: UNK
     Route: 065
     Dates: end: 201301
  8. ACETAMINOPHEN [Suspect]
     Active Substance: ACETAMINOPHEN
     Indication: Pyrexia
     Dosage: 4 G DAILY
     Route: 042
     Dates: start: 20170731, end: 20170807

REACTIONS (2)
  - Neutropenia [Unknown]
  - Liver injury [Recovering/Resolving]

NARRATIVE: CASE EVENT DATE: 20170807
